FAERS Safety Report 25237453 (Version 7)
Quarter: 2025Q3

REPORT INFORMATION
  Report Type: Report from Study
  Country: US (occurrence: US)
  Receive Date: 20250425
  Receipt Date: 20250801
  Transmission Date: 20251020
  Serious: Yes (Other)
  Sender: SUNOVION
  Company Number: US-SMPA-2025SPA004013

PATIENT

DRUGS (36)
  1. ORGOVYX [Suspect]
     Active Substance: RELUGOLIX
     Indication: Prostate cancer
     Dosage: 120 MG, QD
     Route: 048
     Dates: start: 20250401
  2. NUBEQA [Suspect]
     Active Substance: DAROLUTAMIDE
     Indication: Prostate cancer
     Dosage: 600 MG, BID
     Route: 065
  3. ACYCLOVIR [Concomitant]
     Active Substance: ACYCLOVIR
     Route: 065
  4. ASPIRIN [Concomitant]
     Active Substance: ASPIRIN
     Route: 065
  5. AMITIZA [Concomitant]
     Active Substance: LUBIPROSTONE
     Route: 065
  6. ATORVASTATIN [Concomitant]
     Active Substance: ATORVASTATIN
     Route: 065
  7. CLOPIDOGREL [Concomitant]
     Active Substance: CLOPIDOGREL BISULFATE
     Route: 065
  8. DIFLUCAN [Concomitant]
     Active Substance: FLUCONAZOLE
     Route: 065
  9. DOCETAXEL [Concomitant]
     Active Substance: DOCETAXEL
     Route: 065
  10. DOCUSATE [Concomitant]
     Active Substance: DOCUSATE
     Route: 065
  11. ELIGARD [Concomitant]
     Active Substance: LEUPROLIDE ACETATE
     Route: 058
  12. FERROUS SULFATE [Concomitant]
     Active Substance: FERROUS SULFATE
     Route: 065
  13. LISINOPRIL [Concomitant]
     Active Substance: LISINOPRIL
     Route: 065
  14. MORPHINE SULFATE [Concomitant]
     Active Substance: MORPHINE SULFATE
     Route: 065
  15. NITROGLYCERIN [Concomitant]
     Active Substance: NITROGLYCERIN
     Route: 065
  16. OXYCODONE [Concomitant]
     Active Substance: OXYCODONE
     Route: 065
  17. CALCIUM [Concomitant]
     Active Substance: CALCIUM
     Route: 065
  18. PREDNISONE [Concomitant]
     Active Substance: PREDNISONE
     Route: 065
  19. MIRALAX [Concomitant]
     Active Substance: POLYETHYLENE GLYCOL 3350
     Route: 065
  20. PROLIA [Concomitant]
     Active Substance: DENOSUMAB
     Route: 058
  21. VALSARTAN [Concomitant]
     Active Substance: VALSARTAN
     Route: 065
  22. VITAMIN B12 [Concomitant]
     Active Substance: CYANOCOBALAMIN
     Route: 065
  23. VITAMIN D3 [Concomitant]
     Active Substance: CHOLECALCIFEROL
     Route: 065
  24. VITAMIN C [Concomitant]
     Active Substance: ASCORBIC ACID
     Route: 065
  25. Viactiv [Concomitant]
     Route: 048
  26. XANAX [Concomitant]
     Active Substance: ALPRAZOLAM
     Route: 065
  27. XGEVA [Concomitant]
     Active Substance: DENOSUMAB
     Route: 058
  28. ZARXIO [Concomitant]
     Active Substance: FILGRASTIM-SNDZ
     Route: 065
  29. POLYETHYLENE GLYCOL [Concomitant]
     Active Substance: POLYETHYLENE GLYCOL
     Route: 065
  30. Oyster shell cacium with vitamin d [Concomitant]
     Route: 065
  31. ASPIRIN [Concomitant]
     Active Substance: ASPIRIN
     Route: 065
  32. LYNPARZA [Concomitant]
     Active Substance: OLAPARIB
     Route: 065
  33. AUGMENTIN [Concomitant]
     Active Substance: AMOXICILLIN\CLAVULANATE POTASSIUM
     Route: 065
  34. TUMS [Concomitant]
     Active Substance: CALCIUM CARBONATE
     Route: 065
  35. Amoxicilin- pot calvulanate [Concomitant]
     Route: 065
  36. LOVENOX [Concomitant]
     Active Substance: ENOXAPARIN SODIUM
     Route: 065

REACTIONS (10)
  - Metastases to liver [Unknown]
  - Prostatic specific antigen increased [Unknown]
  - Vomiting [Unknown]
  - Blood viscosity increased [Unknown]
  - Abdominal discomfort [Unknown]
  - Nausea [Unknown]
  - Constipation [Unknown]
  - Arthralgia [Unknown]
  - Incorrect dose administered [Recovered/Resolved]
  - Product dose omission issue [Recovered/Resolved]

NARRATIVE: CASE EVENT DATE: 20250301
